FAERS Safety Report 5177172-7 (Version None)
Quarter: 2006Q4

REPORT INFORMATION
  Report Type: 
  Country: None (occurrence: None)
  Receive Date: 20061218
  Receipt Date: 20061206
  Transmission Date: 20070319
  Serious: Yes (Hospitalization)
  Sender: FDA-Public Use
  Company Number: JP-ROCHE-474368

PATIENT
  Age: 47 Year
  Sex: Male

DRUGS (1)
  1. INTERFERON ALFA-2A [Suspect]
     Indication: HEPATITIS
     Dosage: ^900X104U/DAY^
     Route: 065

REACTIONS (1)
  - ADDISON'S DISEASE [None]
